FAERS Safety Report 17259420 (Version 6)
Quarter: 2020Q4

REPORT INFORMATION
  Report Type: Spontaneous
  Country: JP (occurrence: JP)
  Receive Date: 20200110
  Receipt Date: 20201121
  Transmission Date: 20210113
  Serious: Yes (Life-Threatening, Other)
  Sender: FDA-Public Use
  Company Number: JP-009507513-2001JPN000942J

PATIENT
  Age: 89 Year
  Sex: Female
  Weight: 73 kg

DRUGS (3)
  1. OLMESARTAN MEDOXOMIL. [Concomitant]
     Active Substance: OLMESARTAN MEDOXOMIL
     Indication: HYPERTENSION
     Dosage: 20 MILLIGRAM DAILY
     Route: 048
  2. ATORVASTATIN [Concomitant]
     Active Substance: ATORVASTATIN
     Indication: DYSLIPIDAEMIA
     Dosage: 5 MILLIGRAM DAILY
     Route: 048
  3. KEYTRUDA [Suspect]
     Active Substance: PEMBROLIZUMAB
     Indication: LUNG SQUAMOUS CELL CARCINOMA STAGE IV
     Dosage: 200MG/BODYWEIGHT EVERY 4 WEEKS
     Route: 041
     Dates: start: 20181114, end: 20190314

REACTIONS (2)
  - Off label use [Unknown]
  - Immune-mediated cytopenia [Recovered/Resolved]

NARRATIVE: CASE EVENT DATE: 2018
